FAERS Safety Report 8398101-9 (Version None)
Quarter: 2012Q2

REPORT INFORMATION
  Report Type: 
  Country: None (occurrence: None)
  Receive Date: 20120531
  Receipt Date: 20120528
  Transmission Date: 20120825
  Serious: Yes (Death)
  Sender: FDA-Public Use
  Company Number: AU-SANOFI-AVENTIS-2012SA037366

PATIENT
  Age: 60 Year

DRUGS (1)
  1. JEVTANA KIT [Suspect]

REACTIONS (1)
  - DEATH [None]
